FAERS Safety Report 6769540-4 (Version None)
Quarter: 2010Q2

REPORT INFORMATION
  Report Type: 
  Country: None (occurrence: None)
  Receive Date: 20100615
  Receipt Date: 20100601
  Transmission Date: 20101027
  Serious: Yes (Other)
  Sender: FDA-Public Use
  Company Number: PHHY2010IL35553

PATIENT
  Sex: Female

DRUGS (1)
  1. CARBAMAZEPINE [Suspect]
     Dosage: MATERNAL DOSE UNKNOWN
     Route: 064

REACTIONS (11)
  - ANTIACETYLCHOLINE RECEPTOR ANTIBODY POSITIVE [None]
  - AREFLEXIA [None]
  - DRUG EXPOSURE DURING PREGNANCY [None]
  - FOETAL HYPOKINESIA [None]
  - HEAD LAG [None]
  - HYPOTONIA [None]
  - MYASTHENIA GRAVIS NEONATAL [None]
  - NEONATAL RESPIRATORY ACIDOSIS [None]
  - OXYGEN SATURATION DECREASED [None]
  - POOR SUCKING REFLEX [None]
  - RESPIRATORY DEPRESSION [None]
